FAERS Safety Report 9181770 (Version 2)
Quarter: 2013Q2

REPORT INFORMATION
  Report Type: Spontaneous
  Country: US (occurrence: US)
  Receive Date: 20130322
  Receipt Date: 20130410
  Transmission Date: 20140414
  Serious: Yes (Other)
  Sender: FDA-Public Use
  Company Number: US-PERRIGO-13US002719

PATIENT
  Age: 66 Year
  Sex: Female
  Weight: 49.89 kg

DRUGS (5)
  1. LORATADINE 10 MG 612 [Suspect]
     Indication: HYPERSENSITIVITY
     Dosage: 10 MG, QD
     Route: 048
     Dates: start: 201302, end: 201303
  2. LORATADINE 10 MG 612 [Suspect]
     Dosage: 10 MG, PRN
     Route: 048
     Dates: start: 2011, end: 201302
  3. TEGRETOL [Concomitant]
     Indication: CONVULSION
     Dosage: UNK
     Route: 048
     Dates: start: 1986
  4. BIAZ [Concomitant]
     Indication: SUPPLEMENTATION THERAPY
     Dosage: UNK
     Route: 060
     Dates: start: 2011
  5. PROGESTERONE [Concomitant]
     Indication: SUPPLEMENTATION THERAPY
     Dosage: UNK
     Route: 060
     Dates: start: 1982

REACTIONS (2)
  - Partial seizures [Recovering/Resolving]
  - Drug effect decreased [Unknown]
